FAERS Safety Report 4352830-2 (Version None)
Quarter: 2004Q2

REPORT INFORMATION
  Report Type: 
  Country: None (occurrence: None)
  Receive Date: 20040504
  Receipt Date: 20040426
  Transmission Date: 20050107
  Serious: Yes (Death, Hospitalization)
  Sender: FDA-Public Use
  Company Number: PHBS2004IN05696

PATIENT
  Age: 44 Year
  Sex: Female

DRUGS (4)
  1. NEORAL [Suspect]
     Indication: COLITIS ULCERATIVE
     Dosage: UNK, UNK
     Route: 048
  2. AMLODIPINE [Concomitant]
  3. HYDROCORTISONE [Concomitant]
     Dosage: 100 MG, Q8H
     Route: 042
  4. ANTIBIOTICS [Concomitant]

REACTIONS (16)
  - ABDOMINAL DISTENSION [None]
  - BLINDNESS TRANSIENT [None]
  - BLOOD CALCIUM DECREASED [None]
  - BLOOD POTASSIUM DECREASED [None]
  - BLOOD PRESSURE INCREASED [None]
  - DISORIENTATION [None]
  - DISSEMINATED INTRAVASCULAR COAGULATION [None]
  - DRUG LEVEL INCREASED [None]
  - EYE MOVEMENT DISORDER [None]
  - GRAND MAL CONVULSION [None]
  - HALLUCINATION, VISUAL [None]
  - HEADACHE [None]
  - LEUKOENCEPHALOPATHY [None]
  - PYREXIA [None]
  - SEPSIS [None]
  - VISION BLURRED [None]
